FAERS Safety Report 15099007 (Version 1)
Quarter: 2018Q3

REPORT INFORMATION
  Report Type: Report from Study
  Country: IT (occurrence: IT)
  Receive Date: 20180702
  Receipt Date: 20180702
  Transmission Date: 20181010
  Serious: Yes (Hospitalization)
  Sender: FDA-Public Use
  Company Number: IT-PFIZER INC-2018263528

PATIENT
  Age: 48 Year
  Sex: Female

DRUGS (6)
  1. GARDENALE /00023201/ [Suspect]
     Active Substance: PHENOBARBITAL
     Dosage: 2000 MG, SINGLE
     Route: 048
     Dates: start: 20180521, end: 20180521
  2. SERACTIL [Concomitant]
     Active Substance: DEXIBUPROFEN
     Dosage: UNK
  3. LYRICA [Suspect]
     Active Substance: PREGABALIN
     Dosage: 4500 MG, SINGLE
     Route: 048
     Dates: start: 20180521, end: 20180521
  4. CELEBREX [Concomitant]
     Active Substance: CELECOXIB
     Dosage: UNK
  5. STILNOX [Concomitant]
     Active Substance: ZOLPIDEM TARTRATE
     Dosage: UNK
  6. LARGACTIL /00011901/ [Concomitant]
     Active Substance: CHLORPROMAZINE
     Dosage: UNK

REACTIONS (5)
  - Overdose [Unknown]
  - Sopor [Unknown]
  - Drug abuse [Unknown]
  - Toxicity to various agents [Unknown]
  - Suicide attempt [Unknown]

NARRATIVE: CASE EVENT DATE: 20180521
